FAERS Safety Report 24749757 (Version 1)
Quarter: 2024Q4

REPORT INFORMATION
  Report Type: Report from Study
  Country: CA (occurrence: CA)
  Receive Date: 20241218
  Receipt Date: 20241218
  Transmission Date: 20250114
  Serious: Yes (Hospitalization, Other)
  Sender: SAMSUNG BIOEPIS
  Company Number: CA-SAMSUNG BIOEPIS-SB-2024-36234

PATIENT
  Age: 62 Year
  Sex: Male
  Weight: 50 kg

DRUGS (2)
  1. RENFLEXIS [Suspect]
     Active Substance: INFLIXIMAB-ABDA
     Indication: Colitis ulcerative
     Route: 042
     Dates: start: 20240923, end: 20240925
  2. RENFLEXIS [Suspect]
     Active Substance: INFLIXIMAB-ABDA
     Indication: Ankylosing spondylitis
     Route: 042
     Dates: start: 20230925, end: 20240925

REACTIONS (5)
  - Dizziness [Recovering/Resolving]
  - Clostridium difficile infection [Recovering/Resolving]
  - Colitis ulcerative [Recovered/Resolved]
  - Treatment failure [Recovered/Resolved]
  - Off label use [Unknown]
